FAERS Safety Report 9529669 (Version 1)
Quarter: 2013Q3

REPORT INFORMATION
  Report Type: Spontaneous
  Country: GT (occurrence: GT)
  Receive Date: 20130917
  Receipt Date: 20130917
  Transmission Date: 20140515
  Serious: Yes (Other)
  Sender: FDA-Public Use
  Company Number: GT-GLAXOSMITHKLINE-A1031352A

PATIENT
  Age: 28 Year
  Sex: Female

DRUGS (1)
  1. REVOLADE [Suspect]
     Indication: PRODUCT USED FOR UNKNOWN INDICATION
     Route: 065

REACTIONS (1)
  - Myelofibrosis [Unknown]
